FAERS Safety Report 4511375-7 (Version None)
Quarter: 2004Q4

REPORT INFORMATION
  Report Type: 
  Country: None (occurrence: None)
  Receive Date: 20041129
  Receipt Date: 20041117
  Transmission Date: 20050328
  Serious: Yes (Life-Threatening)
  Sender: FDA-Public Use
  Company Number: FR-BRISTOL-MYERS SQUIBB COMPANY-12769303

PATIENT
  Age: 91 Year
  Sex: Male
  Weight: 80 kg

DRUGS (2)
  1. FUNGIZONE [Suspect]
     Indication: ORAL CANDIDIASIS
     Route: 048
     Dates: start: 20040824, end: 20040827
  2. ANTIVITAMIN K [Concomitant]
     Dosage: ONGOING PRIOR TO THE ONSET OF PANCYTOPENIA

REACTIONS (1)
  - PANCYTOPENIA [None]
